FAERS Safety Report 19157676 (Version 1)
Quarter: 2021Q2

REPORT INFORMATION
  Report Type: Spontaneous
  Country: US (occurrence: US)
  Receive Date: 20210419
  Receipt Date: 20210419
  Transmission Date: 20210717
  Serious: Yes (Hospitalization)
  Sender: FDA-Public Use
  Company Number: None

PATIENT
  Age: 54 Year
  Sex: Female

DRUGS (18)
  1. ALBUTEROL HFA [Concomitant]
     Active Substance: ALBUTEROL SULFATE
  2. SPIRIVA [Concomitant]
     Active Substance: TIOTROPIUM BROMIDE MONOHYDRATE
  3. SILDENAFIL. [Concomitant]
     Active Substance: SILDENAFIL
  4. RENEVLA [Concomitant]
  5. MONTELUKAST [Concomitant]
     Active Substance: MONTELUKAST SODIUM
  6. GENTAMICIN TOP CREAM [Concomitant]
  7. OPSUMIT [Suspect]
     Active Substance: MACITENTAN
     Indication: PULMONARY HYPERTENSION
     Route: 048
     Dates: start: 20170803
  8. MIDODRINE [Concomitant]
     Active Substance: MIDODRINE
  9. ADVAIR HFA [Concomitant]
     Active Substance: FLUTICASONE PROPIONATE\SALMETEROL XINAFOATE
  10. WARFARIN [Concomitant]
     Active Substance: WARFARIN
  11. ALLOPURINOL. [Concomitant]
     Active Substance: ALLOPURINOL
  12. CALCITRIOL. [Concomitant]
     Active Substance: CALCITRIOL
  13. BIOTIN [Concomitant]
     Active Substance: BIOTIN
  14. K?TAB [Concomitant]
     Active Substance: POTASSIUM CHLORIDE
  15. RESPIMAT [Concomitant]
  16. AMIODARONE [Concomitant]
     Active Substance: AMIODARONE
  17. PERIDEX [Concomitant]
     Active Substance: CHLORHEXIDINE GLUCONATE
  18. LACTOBACILLUS ACIDOPHILUS\LACTOBACILLUS BULGARICUS [Concomitant]
     Active Substance: LACTOBACILLUS ACIDOPHILUS\LACTOBACILLUS DELBRUECKII SUBSP. BULGARICUS

REACTIONS (3)
  - Pancreatitis acute [None]
  - Cholelithiasis [None]
  - Abdominal pain [None]

NARRATIVE: CASE EVENT DATE: 20210414
